FAERS Safety Report 5214350-2 (Version None)
Quarter: 2007Q1

REPORT INFORMATION
  Report Type: 
  Country: None (occurrence: None)
  Receive Date: 20070122
  Receipt Date: 20070112
  Transmission Date: 20070707
  Serious: Yes (Death, Hospitalization)
  Sender: FDA-Public Use
  Company Number: BE-AMGEN-UK202832

PATIENT
  Sex: Female
  Weight: 61 kg

DRUGS (10)
  1. MIMPARA [Suspect]
     Indication: HYPERPARATHYROIDISM SECONDARY
     Route: 048
     Dates: start: 20060706, end: 20061007
  2. ZANTAC [Concomitant]
     Route: 048
  3. ASAFLOW [Concomitant]
     Route: 048
  4. NITROGLYCERIN [Concomitant]
  5. RENAGEL [Concomitant]
     Route: 048
  6. TRAMADOL HCL [Concomitant]
     Route: 048
  7. DUPHALAC [Concomitant]
     Route: 048
  8. BENSERAZIDE HYDROCHLORIDE/LEVODOPA [Concomitant]
     Route: 048
  9. AMITRIPTYLINE HYDROCHLORIDE [Concomitant]
     Route: 048
  10. LORAMET [Concomitant]
     Route: 048

REACTIONS (4)
  - EATING DISORDER [None]
  - GASTROINTESTINAL OBSTRUCTION [None]
  - HYPERCALCAEMIA [None]
  - VOMITING [None]
